FAERS Safety Report 25358467 (Version 4)
Quarter: 2025Q4

REPORT INFORMATION
  Report Type: Spontaneous
  Country: US (occurrence: US)
  Receive Date: 20250526
  Receipt Date: 20251008
  Transmission Date: 20260117
  Serious: No
  Sender: ALEXION PHARMACEUTICALS
  Company Number: US-AstraZeneca-CH-00877151AP

PATIENT

DRUGS (1)
  1. AIRSUPRA [Suspect]
     Active Substance: ALBUTEROL SULFATE\BUDESONIDE
     Indication: Asthma
     Dosage: 90 MICROGRAM
     Route: 065

REACTIONS (5)
  - Overdose [Unknown]
  - Drug dose omission by device [Unknown]
  - Device failure [Unknown]
  - Device use issue [Unknown]
  - Asthma [Unknown]
